FAERS Safety Report 20424584 (Version 1)
Quarter: 2022Q1

REPORT INFORMATION
  Report Type: Report from Study
  Country: US (occurrence: US)
  Receive Date: 20220203
  Receipt Date: 20220203
  Transmission Date: 20220423
  Serious: No
  Sender: FDA-Public Use
  Company Number: US-EXELIXIS-CABO-20035726

PATIENT
  Age: 65 Year
  Sex: Male

DRUGS (1)
  1. CABOMETYX [Suspect]
     Active Substance: CABOZANTINIB S-MALATE
     Indication: Renal cancer
     Dosage: 40 MG, QD
     Route: 048
     Dates: start: 20201201, end: 20201225

REACTIONS (8)
  - Neuralgia [Unknown]
  - Insomnia [Unknown]
  - Pain [Unknown]
  - Muscle spasms [Unknown]
  - Constipation [Unknown]
  - Decreased appetite [Unknown]
  - Stomatitis [Unknown]
  - Acne [Unknown]

NARRATIVE: CASE EVENT DATE: 20201201
